FAERS Safety Report 8160421-0 (Version None)
Quarter: 2012Q1

REPORT INFORMATION
  Report Type: 
  Country: None (occurrence: None)
  Receive Date: 20120223
  Receipt Date: 20120221
  Transmission Date: 20120608
  Serious: Yes (Other)
  Sender: FDA-Public Use
  Company Number: US-PURDUE-USA-2012-0082659

PATIENT
  Age: 69 Year
  Sex: Male

DRUGS (4)
  1. HALOPERIDOL DECANOATE [Concomitant]
     Indication: SCHIZOAFFECTIVE DISORDER
     Dosage: 100 MG, MONTHLY
     Route: 030
  2. NAPROXEN [Concomitant]
     Indication: PAIN
  3. ZOLPIDEM TARTRATE [Suspect]
     Indication: INSOMNIA
  4. DULOXETIME HYDROCHLORIDE [Concomitant]
     Indication: SCHIZOAFFECTIVE DISORDER
     Dosage: 60 MG, DAILY

REACTIONS (5)
  - DRUG ABUSE [None]
  - LOSS OF CONSCIOUSNESS [None]
  - OVERDOSE [None]
  - DELIRIUM [None]
  - PSYCHOTIC DISORDER [None]
